FAERS Safety Report 25706897 (Version 1)
Quarter: 2025Q3

REPORT INFORMATION
  Report Type: Spontaneous
  Country: US (occurrence: US)
  Receive Date: 20250820
  Receipt Date: 20250820
  Transmission Date: 20251021
  Serious: No
  Sender: IPSEN BIOPHARMACEUTICALS, INC.
  Company Number: US-IPSEN Group, Research and Development-2025-20277

PATIENT
  Sex: Female

DRUGS (3)
  1. DYSPORT [Suspect]
     Active Substance: ABOBOTULINUMTOXINA
     Indication: Torticollis
     Dosage: 300 UNIT: INJECT 300 UNITS IN THE MUSCLE EVERY 3 MONTHS
     Dates: start: 20250207
  2. ADVIL [Concomitant]
     Active Substance: IBUPROFEN
  3. JENCYCLA [Concomitant]
     Active Substance: NORETHINDRONE

REACTIONS (1)
  - Musculoskeletal discomfort [Unknown]
